FAERS Safety Report 4729988-6 (Version None)
Quarter: 2005Q3

REPORT INFORMATION
  Report Type: 
  Country: None (occurrence: None)
  Receive Date: 20050801
  Receipt Date: 20050720
  Transmission Date: 20060218
  Serious: Yes (Hospitalization)
  Sender: FDA-Public Use
  Company Number: NL-BOEHRINGER INGELHEIM PHARMACEUTICALS, INC.-2005-BP-12759YA

PATIENT
  Sex: Male

DRUGS (4)
  1. OMNIC CAPSULES [Suspect]
     Indication: BENIGN PROSTATIC HYPERPLASIA
     Route: 048
     Dates: start: 20050630, end: 20050702
  2. PRAMIPEXOLE DIHYDROCHLORIDE [Concomitant]
     Indication: PARKINSON'S DISEASE
     Route: 048
     Dates: start: 20050524
  3. CARBIDOPA AND LEVODOPA [Concomitant]
     Indication: PARKINSON'S DISEASE
     Dosage: 4 DF
     Route: 048
     Dates: start: 20031030
  4. FLUVOXAMINE [Concomitant]
     Indication: PARKINSON'S DISEASE
     Route: 048
     Dates: start: 20050316

REACTIONS (2)
  - APHASIA [None]
  - DEPRESSED LEVEL OF CONSCIOUSNESS [None]
